FAERS Safety Report 10224028 (Version 5)
Quarter: 2014Q4

REPORT INFORMATION
  Report Type: Spontaneous
  Country: US (occurrence: US)
  Receive Date: 20140609
  Receipt Date: 20141002
  Transmission Date: 20150528
  Serious: Yes (Hospitalization, Other)
  Sender: FDA-Public Use
  Company Number: US-NOVOPROD-411939

PATIENT
  Age: 20 Year
  Sex: Male
  Weight: 84.9 kg

DRUGS (24)
  1. NOVOSEVEN RT [Suspect]
     Active Substance: COAGULATION FACTOR VIIA RECOMBINANT HUMAN
     Dosage: 15 MG DOSE, ALTERNATING EVERY 6-8 HOURS WITH FEIBA 5000 U
     Route: 042
     Dates: start: 20140524, end: 20140527
  2. FEIBA NF [Suspect]
     Active Substance: ANTI-INHIBITOR COAGULANT COMPLEX
     Dosage: 5000 U, Q 12 HOURS ALTERNATING WITH NOVOSEVEN RT
     Route: 042
     Dates: start: 201405, end: 20140606
  3. FEIBA NF [Suspect]
     Active Substance: ANTI-INHIBITOR COAGULANT COMPLEX
     Dosage: UNK, EVERY 12 HOURS
     Route: 042
     Dates: start: 201406, end: 201406
  4. METHADONE [Concomitant]
     Active Substance: METHADONE HYDROCHLORIDE
     Dosage: 5 MG, BID
     Route: 048
  5. FEIBA NF [Suspect]
     Active Substance: ANTI-INHIBITOR COAGULANT COMPLEX
     Dosage: 5000 U, Q 6-8 HOURS ALTERNATING WITH NOVOSEVEN RT
     Route: 042
     Dates: start: 20140524, end: 20140527
  6. FEIBA NF [Suspect]
     Active Substance: ANTI-INHIBITOR COAGULANT COMPLEX
     Dosage: UNK, EVERY 8 HOURS
     Route: 042
     Dates: start: 201406, end: 201406
  7. MULTIVITAMIN                       /00097801/ [Concomitant]
     Active Substance: VITAMINS
     Indication: PRODUCT USED FOR UNKNOWN INDICATION
     Dosage: UNK UNK, QD
     Route: 048
  8. ZANTAC [Concomitant]
     Active Substance: RANITIDINE HYDROCHLORIDE
     Indication: PRODUCT USED FOR UNKNOWN INDICATION
     Dosage: 150 MG, QD
     Route: 048
  9. NOVOSEVEN RT [Suspect]
     Active Substance: COAGULATION FACTOR VIIA RECOMBINANT HUMAN
     Dosage: 15 MG, BOLUS DOSE, FOLLOWED EVERY 6 HOURS WITH FEIBA 5000 U
     Route: 042
     Dates: start: 20140524
  10. NOVOSEVEN RT [Suspect]
     Active Substance: COAGULATION FACTOR VIIA RECOMBINANT HUMAN
     Dosage: UNK, EVERY 8 HOURS
     Route: 042
     Dates: start: 201406
  11. FEIBA NF [Suspect]
     Active Substance: ANTI-INHIBITOR COAGULANT COMPLEX
     Dosage: 5000 U, CONTINUOUS INFUSION WITH RECOMBINANT FACTOR VIIA (RFVIIA)
     Route: 042
     Dates: start: 201406
  12. PHENERGAN [Concomitant]
     Active Substance: PROMETHAZINE HYDROCHLORIDE
     Indication: NAUSEA
     Dosage: 25 MG, Q 6 HOURS PRN
     Route: 048
  13. NOVOSEVEN RT [Suspect]
     Active Substance: COAGULATION FACTOR VIIA RECOMBINANT HUMAN
     Indication: HAEMOPHILIA A WITH ANTI FACTOR VIII
     Dosage: 9.6 MG, QD AT NIGHT
     Route: 042
  14. PHYTONADIONE. [Concomitant]
     Active Substance: PHYTONADIONE
     Indication: PRODUCT USED FOR UNKNOWN INDICATION
     Dosage: 0.1 MG, QD
     Route: 048
  15. FEIBA VH [Concomitant]
     Active Substance: ANTI-INHIBITOR COAGULANT COMPLEX
     Indication: HAEMOPHILIA A WITH ANTI FACTOR VIII
     Dosage: 50 UNITS/KG IV PUSH ONCE DAILY
     Route: 042
  16. NOVOSEVEN RT [Suspect]
     Active Substance: COAGULATION FACTOR VIIA RECOMBINANT HUMAN
     Dosage: 10 MG, ALTERNATING WITH FEIBA 5000 U EVERY 6 HOURS
     Route: 042
  17. FEIBA NF [Suspect]
     Active Substance: ANTI-INHIBITOR COAGULANT COMPLEX
     Dosage: 5000 U, Q 6 HOURS ALTERNATING WITH NOVOSEVEN RT
     Route: 042
     Dates: start: 20140524
  18. PHENERGAN [Concomitant]
     Active Substance: PROMETHAZINE HYDROCHLORIDE
     Indication: VOMITING
  19. ALLEGRA [Concomitant]
     Active Substance: FEXOFENADINE HYDROCHLORIDE
     Indication: PRODUCT USED FOR UNKNOWN INDICATION
     Dosage: 180 MG, QD
     Route: 048
  20. NOVOSEVEN RT [Suspect]
     Active Substance: COAGULATION FACTOR VIIA RECOMBINANT HUMAN
     Dosage: 15 MG, ALTERNATING EVERY 12 HOURS WITH FEIBA 5000 U
     Route: 042
     Dates: start: 201405, end: 20140606
  21. NOVOSEVEN RT [Suspect]
     Active Substance: COAGULATION FACTOR VIIA RECOMBINANT HUMAN
     Dosage: UNK, EVERY 12 HOURS
     Route: 042
     Dates: start: 201406, end: 201406
  22. METHADONE [Concomitant]
     Active Substance: METHADONE HYDROCHLORIDE
     Dosage: 5 MG, QD
     Route: 048
  23. MYCOPHENOLATE MOFETIL. [Concomitant]
     Active Substance: MYCOPHENOLATE MOFETIL
     Indication: PRODUCT USED FOR UNKNOWN INDICATION
     Dosage: 1000 MG, BID
     Route: 048
  24. FEIBA NF [Suspect]
     Active Substance: ANTI-INHIBITOR COAGULANT COMPLEX
     Indication: HAEMOPHILIA A WITH ANTI FACTOR VIII
     Dosage: 5000 U, UNK
     Route: 042

REACTIONS (3)
  - Drug ineffective [Recovered/Resolved]
  - Drug ineffective [Recovered/Resolved]
  - Renal haemorrhage [Recovered/Resolved]

NARRATIVE: CASE EVENT DATE: 20140524
